FAERS Safety Report 7462526-6 (Version None)
Quarter: 2011Q2

REPORT INFORMATION
  Report Type: 
  Country: None (occurrence: None)
  Receive Date: 20110506
  Receipt Date: 20101201
  Transmission Date: 20111010
  Serious: No
  Sender: FDA-Public Use
  Company Number: US-BAYER-2010-006286

PATIENT
  Age: 37 Year
  Sex: Female

DRUGS (2)
  1. CIPRODEX [Concomitant]
  2. AVELOX [Suspect]
     Indication: PRODUCT USED FOR UNKNOWN INDICATION
     Dosage: 400 MG, QD
     Dates: start: 20101111, end: 20101111

REACTIONS (3)
  - ABDOMINAL DISCOMFORT [None]
  - TREMOR [None]
  - HEADACHE [None]
